FAERS Safety Report 8878501 (Version 1)
Quarter: 2012Q4

REPORT INFORMATION
  Report Type: 
  Country: US (occurrence: US)
  Receive Date: 20121025
  Receipt Date: 20121025
  Transmission Date: 20130627
  Serious: No
  Sender: FDA-Public Use
  Company Number: US-AMGEN-USASP2012022920

PATIENT
  Sex: Female

DRUGS (10)
  1. ENBREL [Suspect]
     Indication: PRODUCT USED FOR UNKNOWN INDICATION
     Dosage: 50 mg, qwk
     Route: 058
  2. ALLERGY MEDICATION [Concomitant]
  3. AMITRIPTYLIN [Concomitant]
     Dosage: 25 mg, UNK
  4. VITAMIN D /00107901/ [Concomitant]
     Dosage: 1000 IU, UNK
  5. METHOTREXATE [Concomitant]
     Dosage: 2.5 mg, UNK
  6. FOLIC ACID [Concomitant]
     Dosage: 5 mg, UNK
  7. MULTIVITAMIN                       /00097801/ [Concomitant]
  8. PLAQUENIL                          /00072603/ [Concomitant]
     Dosage: 200 mg, UNK
  9. TRICOR                             /00090101/ [Concomitant]
     Dosage: 48 mg, UNK
  10. LEVOTHYROXIN [Concomitant]
     Dosage: 25 mug, UNK

REACTIONS (3)
  - Sinusitis [Unknown]
  - Ear infection [Unknown]
  - Bronchitis [Unknown]
